FAERS Safety Report 19084623 (Version 1)
Quarter: 2021Q2

REPORT INFORMATION
  Report Type: Spontaneous
  Country: US (occurrence: US)
  Receive Date: 20210401
  Receipt Date: 20210401
  Transmission Date: 20210717
  Serious: No
  Sender: FDA-Public Use
  Company Number: US-IBSA PHARMA-2020-IBS-00773

PATIENT

DRUGS (5)
  1. PENICILLIN                         /00000901/ [Suspect]
     Active Substance: PENICILLIN G
  2. ZITHROMAX [Suspect]
     Active Substance: AZITHROMYCIN DIHYDRATE
  3. METHOTREXATE SODIUM. [Suspect]
     Active Substance: METHOTREXATE SODIUM
  4. SULFA                              /00076401/ [Suspect]
     Active Substance: SULFADIAZINE
  5. UNSPECIFIED DICLOFENAC [Suspect]
     Active Substance: DICLOFENAC

REACTIONS (1)
  - Drug hypersensitivity [Unknown]
